FAERS Safety Report 20580752 (Version 1)
Quarter: 2022Q1

REPORT INFORMATION
  Report Type: Spontaneous
  Country: US (occurrence: US)
  Receive Date: 20220311
  Receipt Date: 20220311
  Transmission Date: 20220423
  Serious: Yes (Hospitalization, Other)
  Sender: FDA-Public Use
  Company Number: US-Accord-256529

PATIENT
  Age: 21 Month
  Sex: Male

DRUGS (1)
  1. ARIPIPRAZOLE [Suspect]
     Active Substance: ARIPIPRAZOLE
     Indication: Product used for unknown indication
     Dosage: TWENTY-SIX TWO-MILLIGRAM (MG) ARIPIPRAZOLE TABLETS

REACTIONS (8)
  - Overdose [Unknown]
  - Electrocardiogram ST segment depression [Unknown]
  - Sinus tachycardia [Recovered/Resolved]
  - Hypertension [Recovered/Resolved]
  - Hyperreflexia [Unknown]
  - Lethargy [Recovering/Resolving]
  - Muscle spasticity [Recovered/Resolved]
  - Tremor [Recovered/Resolved]
